FAERS Safety Report 14831861 (Version 2)
Quarter: 2018Q2

REPORT INFORMATION
  Report Type: Spontaneous
  Country: DE (occurrence: DE)
  Receive Date: 20180501
  Receipt Date: 20180524
  Transmission Date: 20180711
  Serious: Yes (Death, Hospitalization)
  Sender: FDA-Public Use
  Company Number: PHHY2010DE101568

PATIENT
  Age: 77 Year
  Sex: Female
  Weight: 69.6 kg

DRUGS (5)
  1. PACLITAXEL. [Suspect]
     Active Substance: PACLITAXEL
     Indication: BREAST CANCER
     Dosage: 90 MG/M2, CYCLIC (THIRD CYCLE FROM 11 JAN 2010 TO 15 MAR 2010)
     Route: 042
     Dates: start: 20100111, end: 20100315
  2. BEVACIZUMAB. [Suspect]
     Active Substance: BEVACIZUMAB
     Dosage: 1044 MG, CYCLIC (THIRD CYCLE FROM 11 JAN 2010 TO 08 MAR 2010)
     Route: 042
  3. AVASTIN [Suspect]
     Active Substance: BEVACIZUMAB
     Indication: BREAST CANCER
     Dosage: 678 MG, UNK
     Route: 042
     Dates: start: 20100111, end: 20100308
  4. BEVACIZUMAB. [Suspect]
     Active Substance: BEVACIZUMAB
     Indication: BREAST CANCER
     Dosage: 678 MG, CYCLIC (THIRD CYCLE FROM 11 JAN 2010 TO 08 MAR 2010)
     Route: 042
  5. ZOMETA [Concomitant]
     Active Substance: ZOLEDRONIC ACID
     Indication: BREAST CANCER
     Dosage: 4 MG, UNK
     Route: 042

REACTIONS (1)
  - Pancytopenia [Fatal]

NARRATIVE: CASE EVENT DATE: 20100322
